FAERS Safety Report 21835431 (Version 1)
Quarter: 2023Q1

REPORT INFORMATION
  Report Type: Spontaneous
  Country: CA (occurrence: CA)
  Receive Date: 20230109
  Receipt Date: 20230109
  Transmission Date: 20230418
  Serious: Yes (Life-Threatening, Hospitalization)
  Sender: FDA-Public Use
  Company Number: CA-009507513-2301CAN001280

PATIENT
  Age: 13 Year
  Sex: Female
  Weight: 33 kg

DRUGS (15)
  1. INVANZ [Suspect]
     Active Substance: ERTAPENEM SODIUM
     Indication: Pyelonephritis acute
     Dosage: 1000.0 MILLIGRAM, 1 EVERY 1 DAYS
     Route: 042
  2. INVANZ [Suspect]
     Active Substance: ERTAPENEM SODIUM
     Indication: Escherichia bacteraemia
  3. ACETAMINOPHEN [Concomitant]
     Active Substance: ACETAMINOPHEN
  4. AMOXICILLIN\CLAVULANATE POTASSIUM [Concomitant]
     Active Substance: AMOXICILLIN\CLAVULANATE POTASSIUM
  5. AMPICILLIN [Concomitant]
     Active Substance: AMPICILLIN
  6. CEFOTAXIME [Concomitant]
     Active Substance: CEFOTAXIME SODIUM
  7. CHOLECALCIFEROL [Concomitant]
     Active Substance: CHOLECALCIFEROL
  8. CLONIDINE [Concomitant]
     Active Substance: CLONIDINE
  9. GENTAMICIN [Concomitant]
     Active Substance: GENTAMICIN
  10. IBUPROFEN [Concomitant]
     Active Substance: IBUPROFEN
  11. LANSOPRAZOLE [Concomitant]
     Active Substance: LANSOPRAZOLE
  12. LEVETIRACETAM [Concomitant]
     Active Substance: LEVETIRACETAM
     Route: 065
  13. NAPROXEN [Concomitant]
     Active Substance: NAPROXEN
  14. PYRIDOXINE [Concomitant]
     Active Substance: PYRIDOXINE
  15. VALPROIC ACID [Concomitant]
     Active Substance: VALPROIC ACID

REACTIONS (5)
  - Decreased appetite [Recovered/Resolved]
  - Fluid intake reduced [Recovered/Resolved]
  - Micturition frequency decreased [Recovered/Resolved]
  - Petit mal epilepsy [Recovered/Resolved]
  - Seizure [Recovered/Resolved]
